FAERS Safety Report 19703936 (Version 4)
Quarter: 2022Q1

REPORT INFORMATION
  Report Type: Report from Study
  Country: FR (occurrence: FR)
  Receive Date: 20210816
  Receipt Date: 20220328
  Transmission Date: 20220423
  Serious: Yes (Death, Other)
  Sender: FDA-Public Use
  Company Number: FR-JNJFOC-20210811902

PATIENT
  Age: 63 Year
  Sex: Male

DRUGS (22)
  1. DARATUMUMAB [Suspect]
     Active Substance: DARATUMUMAB
     Indication: Plasma cell myeloma
     Dosage: 704 MILLIGRAM / INDUCTION C1 DAY 1-2
     Route: 042
     Dates: start: 20200227, end: 20200228
  2. DARATUMUMAB [Suspect]
     Active Substance: DARATUMUMAB
     Dosage: 1408 MILLIGRAM / INDUCTION C1 DAYS 8,15, 22
     Route: 042
     Dates: start: 20200227, end: 20200630
  3. DARATUMUMAB [Suspect]
     Active Substance: DARATUMUMAB
     Dosage: 1408 MILLIGRAM / INDUCTION C2 DAYS 8,15, 22
     Route: 042
     Dates: start: 20200227, end: 20200317
  4. DARATUMUMAB [Suspect]
     Active Substance: DARATUMUMAB
     Dosage: 1408 MILLIGRAM / INDUCTION C3 TO C6 DAYS 1 AND 15
     Route: 042
     Dates: start: 20200324, end: 20200630
  5. DARATUMUMAB [Suspect]
     Active Substance: DARATUMUMAB
     Dosage: 1408 MILLIGRAM / CONSOLIDATION (4 CYCLES) C7 TO C10 DAY 1-15
     Route: 042
     Dates: start: 20201008, end: 20210114
  6. DARATUMUMAB [Suspect]
     Active Substance: DARATUMUMAB
     Dosage: MAINTENANCE, LAST DOSE WAS ON 20-MAY-2021.
     Route: 042
     Dates: start: 20210325
  7. CARFILZOMIB [Suspect]
     Active Substance: CARFILZOMIB
     Indication: Plasma cell myeloma
     Dosage: 38.8 MILLIGRAM / INDUCTION C1 DAY 1-2
     Route: 042
     Dates: start: 20200127, end: 20200128
  8. CARFILZOMIB [Suspect]
     Active Substance: CARFILZOMIB
     Dosage: 69.8 MILLIGRAM / INDUCTION C1 DAYS 8-9 AND 15-16
     Route: 042
     Dates: start: 20200204, end: 20200212
  9. CARFILZOMIB [Suspect]
     Active Substance: CARFILZOMIB
     Dosage: C2 TO C6 DAYS 1-2, 8-9, 15-16, (70MG/DAY DURING C2 AND C6)
     Route: 042
     Dates: start: 20200225, end: 20200701
  10. CARFILZOMIB [Suspect]
     Active Substance: CARFILZOMIB
     Dosage: 39 MILLIGRAM / CONSOLIDATION (4 CYCLES) DAY 1 (C7)
     Route: 042
     Dates: start: 20201008, end: 20201008
  11. CARFILZOMIB [Suspect]
     Active Substance: CARFILZOMIB
     Dosage: 109 MILLIGRAM / CONSOLIDATION (4 CYCLES) DAY 8 AND 15 (C7)
     Route: 042
     Dates: start: 20201015, end: 20201022
  12. CARFILZOMIB [Suspect]
     Active Substance: CARFILZOMIB
     Dosage: 108 MILLIGRAM / CONSOLIDATION (4 CYCLES) C8 TO C10
     Route: 042
     Dates: start: 20201105, end: 20210114
  13. LENALIDOMIDE [Suspect]
     Active Substance: LENALIDOMIDE
     Indication: Plasma cell myeloma
     Dosage: 25 MILLIGRAM / INDUCTION C1 TO C6 : 25 MG/DAY FROM DAY 1 TO DAY 21
     Route: 048
     Dates: start: 20200127, end: 20200706
  14. LENALIDOMIDE [Suspect]
     Active Substance: LENALIDOMIDE
     Dosage: 15 MILLIGRAM / CONSOLIDATION C7 15 MG/DAY FROM DAY 1 TO DAY 21
     Route: 048
     Dates: start: 20201008, end: 20201028
  15. LENALIDOMIDE [Suspect]
     Active Substance: LENALIDOMIDE
     Dosage: 25 MILLIGRAM / CONSOLIDATION C8 TO C10 25 MG/DAY FROM D 1 TO D 21
     Route: 048
     Dates: start: 20201105, end: 20210120
  16. LENALIDOMIDE [Suspect]
     Active Substance: LENALIDOMIDE
     Route: 048
     Dates: start: 20210325, end: 20210617
  17. DEXAMETHASONE [Suspect]
     Active Substance: DEXAMETHASONE
     Indication: Plasma cell myeloma
     Dosage: 20 MILLIGRAM / C1 TO C6 : 20 MG/DAY ON DAYS 1-2-8-9-15-16-22-23
     Route: 048
     Dates: start: 20200127, end: 20200708
  18. DEXAMETHASONE [Suspect]
     Active Substance: DEXAMETHASONE
     Dosage: 40 MILLIGRAM / CONSOLIDATION C7 TO C10 : 40 MG/DAY ON DAYS 1-8-15-22
     Route: 048
     Dates: start: 20201008, end: 20210121
  19. CYCLOPHOSPHAMIDE [Concomitant]
     Active Substance: CYCLOPHOSPHAMIDE
     Route: 065
     Dates: start: 20200727
  20. MELPHALAN [Concomitant]
     Active Substance: MELPHALAN
     Route: 065
     Dates: start: 20210201
  21. PROPRANOLOL [Concomitant]
     Active Substance: PROPRANOLOL HYDROCHLORIDE
     Route: 065
  22. LEVODOPA [Concomitant]
     Active Substance: LEVODOPA
     Route: 065

REACTIONS (1)
  - Progressive multifocal leukoencephalopathy [Fatal]

NARRATIVE: CASE EVENT DATE: 20210408
